FAERS Safety Report 23241841 (Version 2)
Quarter: 2024Q1

REPORT INFORMATION
  Report Type: Spontaneous
  Country: US (occurrence: US)
  Receive Date: 20231129
  Receipt Date: 20240226
  Transmission Date: 20240409
  Serious: Yes (Hospitalization, Other)
  Sender: FDA-Public Use
  Company Number: US-MYLANLABS-2023M1125058

PATIENT
  Age: 25 Year
  Sex: Female
  Weight: 40 kg

DRUGS (6)
  1. AMLODIPINE [Suspect]
     Active Substance: AMLODIPINE BESYLATE
     Indication: Reynold^s syndrome
     Dosage: UNK
     Route: 065
  2. AMLODIPINE [Suspect]
     Active Substance: AMLODIPINE BESYLATE
     Indication: Premenstrual dysphoric disorder
  3. AMLODIPINE [Suspect]
     Active Substance: AMLODIPINE BESYLATE
     Indication: Autism spectrum disorder
  4. TRIAMCINOLONE [Concomitant]
     Active Substance: TRIAMCINOLONE
     Indication: Product used for unknown indication
     Dosage: UNK
     Route: 065
  5. Depoo [Concomitant]
     Indication: Premenstrual dysphoric disorder
     Dosage: UNK
     Route: 065
     Dates: start: 202304, end: 202307
  6. Depoo [Concomitant]
     Indication: Autism spectrum disorder

REACTIONS (7)
  - Craniocerebral injury [Not Recovered/Not Resolved]
  - Impaired work ability [Not Recovered/Not Resolved]
  - Illness [Not Recovered/Not Resolved]
  - Neurodevelopmental disorder [Not Recovered/Not Resolved]
  - Multi-organ disorder [Not Recovered/Not Resolved]
  - Suicide attempt [Unknown]
  - Off label use [Unknown]

NARRATIVE: CASE EVENT DATE: 20220914
